FAERS Safety Report 8393280 (Version 2)
Quarter: 2014Q2

REPORT INFORMATION
  Report Type: Spontaneous
  Country: US (occurrence: US)
  Receive Date: 20120207
  Receipt Date: 20140508
  Transmission Date: 20141212
  Serious: Yes (Hospitalization)
  Sender: FDA-Public Use
  Company Number: US-RANBAXY-2012US-52199

PATIENT
  Age: 65 Year
  Sex: Male

DRUGS (3)
  1. CITALOPRAM [Suspect]
     Indication: DEPRESSION
     Dosage: UNK
     Route: 065
  2. CIPRO [Interacting]
     Indication: URINARY TRACT INFECTION
     Dosage: 500 MG, BID
     Route: 065
  3. ALBUTEROL [Concomitant]
     Indication: EMPHYSEMA
     Dosage: UNK
     Route: 055

REACTIONS (4)
  - Torsade de pointes [Recovering/Resolving]
  - Altered state of consciousness [Recovered/Resolved]
  - Seizure like phenomena [Unknown]
  - Potentiating drug interaction [Unknown]
